FAERS Safety Report 7251393-1 (Version None)
Quarter: 2011Q1

REPORT INFORMATION
  Report Type: 
  Country: None (occurrence: None)
  Receive Date: 20110119
  Receipt Date: 20110104
  Transmission Date: 20110831
  Serious: Yes (Other)
  Sender: FDA-Public Use
  Company Number: IMP_05151_2011

PATIENT
  Age: 94 Year
  Sex: Male

DRUGS (2)
  1. MIDODRINE 2.5 MG [Suspect]
     Indication: PRODUCT USED FOR UNKNOWN INDICATION
     Dosage: DF
     Dates: start: 20101222
  2. MIDODRINE HYDROCHLORIDE [Concomitant]

REACTIONS (4)
  - BALANCE DISORDER [None]
  - PRODUCT SUBSTITUTION ISSUE [None]
  - LOSS OF CONSCIOUSNESS [None]
  - BLOOD PRESSURE INCREASED [None]
